FAERS Safety Report 7220328-X (Version None)
Quarter: 2011Q1

REPORT INFORMATION
  Report Type: 
  Country: None (occurrence: None)
  Receive Date: 20110111
  Receipt Date: 20101227
  Transmission Date: 20110831
  Serious: Yes (Other)
  Sender: FDA-Public Use
  Company Number: SE-PFIZER INC-2011003748

PATIENT
  Age: 12 Month
  Sex: Female
  Weight: 11 kg

DRUGS (3)
  1. IPREN [Suspect]
     Dosage: 125 MG, SINGLE
     Route: 054
     Dates: start: 20100420, end: 20100420
  2. IPREN [Suspect]
     Dosage: 62.5 MG, 2X/DAY
     Route: 054
     Dates: start: 20100420, end: 20100420
  3. ALVEDON [Concomitant]
     Indication: PYREXIA
     Dosage: UNK
     Route: 065

REACTIONS (3)
  - CONFUSIONAL STATE [None]
  - ANXIETY [None]
  - DEPRESSED LEVEL OF CONSCIOUSNESS [None]
